FAERS Safety Report 7757237-3 (Version None)
Quarter: 2011Q3

REPORT INFORMATION
  Report Type: 
  Country: None (occurrence: None)
  Receive Date: 20110916
  Receipt Date: 20110908
  Transmission Date: 20111222
  Serious: Yes (Hospitalization)
  Sender: FDA-Public Use
  Company Number: US-BAYER-201038312NA

PATIENT
  Age: 30 Year
  Sex: Female
  Weight: 84.807 kg

DRUGS (3)
  1. YASMIN [Suspect]
     Indication: ACNE
     Dosage: UNK
  2. YAZ [Suspect]
     Indication: ACNE
     Dosage: UNK
  3. PHENTERMINE [Concomitant]

REACTIONS (3)
  - ATRIAL SEPTAL DEFECT [None]
  - CARDIAC OPERATION [None]
  - CEREBROVASCULAR ACCIDENT [None]
